FAERS Safety Report 14941599 (Version 2)
Quarter: 2018Q3

REPORT INFORMATION
  Report Type: Report from Study
  Country: US (occurrence: US)
  Receive Date: 20180526
  Receipt Date: 20180709
  Transmission Date: 20181010
  Serious: Yes (Other)
  Sender: FDA-Public Use
  Company Number: PHEH2018US019580

PATIENT
  Age: 73 Year
  Sex: Male
  Weight: 79.37 kg

DRUGS (1)
  1. ENTRESTO [Suspect]
     Active Substance: SACUBITRIL\VALSARTAN
     Indication: CARDIAC FAILURE
     Dosage: 49 MG, BID
     Route: 048
     Dates: start: 20180101

REACTIONS (5)
  - Ejection fraction decreased [Recovering/Resolving]
  - Blood potassium increased [Unknown]
  - Hypotension [Unknown]
  - Muscular weakness [Unknown]
  - Muscle spasms [Unknown]

NARRATIVE: CASE EVENT DATE: 20180523
